FAERS Safety Report 7312690-4 (Version None)
Quarter: 2011Q1

REPORT INFORMATION
  Report Type: 
  Country: None (occurrence: None)
  Receive Date: 20110224
  Receipt Date: 20110103
  Transmission Date: 20110831
  Serious: No
  Sender: FDA-Public Use
  Company Number: US-ASTRAZENECA-2011SE00262

PATIENT
  Age: 82 Year
  Sex: Female
  Weight: 74.8 kg

DRUGS (1)
  1. VIMOVO [Suspect]
     Route: 048
     Dates: start: 20101216

REACTIONS (1)
  - MUSCLE SPASMS [None]
